FAERS Safety Report 24067747 (Version 2)
Quarter: 2024Q3

REPORT INFORMATION
  Report Type: Report from Study
  Country: BR (occurrence: BR)
  Receive Date: 20240710
  Receipt Date: 20240720
  Transmission Date: 20241016
  Serious: Yes (Other)
  Sender: JOHNSON AND JOHNSON
  Company Number: BR-JNJFOC-20240709730

PATIENT
  Age: 57 Year
  Sex: Female
  Weight: 103 kg

DRUGS (6)
  1. GOLIMUMAB [Suspect]
     Active Substance: GOLIMUMAB
     Indication: Ankylosing spondylitis
     Dosage: LAST DRUG APPLICATION WAS ON 03-JUN-2024
     Route: 058
     Dates: start: 20180307
  2. GOLIMUMAB [Suspect]
     Active Substance: GOLIMUMAB
     Indication: Rheumatoid arthritis
  3. MESALAMINE [Concomitant]
     Active Substance: MESALAMINE
  4. PERIVASC [AMLODIPINE BESILATE] [Concomitant]
  5. KETOPROFEN [Concomitant]
     Active Substance: KETOPROFEN
  6. LOPERAMIDE [Concomitant]
     Active Substance: LOPERAMIDE

REACTIONS (4)
  - Dysentery [Unknown]
  - Crohn^s disease [Unknown]
  - Haemorrhoids [Unknown]
  - Drug ineffective [Unknown]
